FAERS Safety Report 6601897-7 (Version None)
Quarter: 2010Q1

REPORT INFORMATION
  Report Type: 
  Country: None (occurrence: None)
  Receive Date: 20100225
  Receipt Date: 20100216
  Transmission Date: 20100710
  Serious: Yes (Other)
  Sender: FDA-Public Use
  Company Number: GB-JNJFOC-20091206628

PATIENT
  Age: 17 Year
  Sex: Male

DRUGS (17)
  1. CAELYX [Suspect]
     Indication: BURKITT'S LYMPHOMA
     Dosage: 200MG/M2 CUMULATIVE DOSE
     Route: 042
  2. ITRACONAZOLE [Suspect]
     Indication: PROPHYLAXIS
     Route: 065
  3. THIOGUANINE [Suspect]
     Indication: BURKITT'S LYMPHOMA
     Dosage: 750 MG/M2 CUMULATIVE DOSE
     Route: 065
  4. ARA-C [Suspect]
     Indication: BURKITT'S LYMPHOMA
     Dosage: 1000 MG/M2 CUMULATIVE DOSE
     Route: 065
  5. METHOTREXATE [Suspect]
     Indication: BURKITT'S LYMPHOMA
     Dosage: 4G/M2 CUMULATIVE DOSE
     Route: 037
  6. PREDNISOLONE [Suspect]
     Indication: BURKITT'S LYMPHOMA
     Dosage: 2G/M2 CUMULATIVE DOSE
     Route: 065
  7. RITUXIMAB [Suspect]
     Indication: BURKITT'S LYMPHOMA
     Dosage: 1500 MG SUMULATIVE DOSE
     Route: 065
  8. VINCRISTINE [Suspect]
     Indication: BURKITT'S LYMPHOMA
     Dosage: 6 MG/M2 CUMULATIVE DOSE
     Route: 065
  9. VP-16 [Suspect]
     Indication: BURKITT'S LYMPHOMA
     Dosage: 400 MG/M2 CUMULATIVE DOSE
     Route: 065
  10. ACYCLOVIR [Suspect]
     Indication: PROPHYLAXIS
     Route: 065
  11. CO-TRIMOXAZOLE [Suspect]
     Indication: PROPHYLAXIS
     Route: 065
  12. DEXRAZOXANE [Suspect]
     Indication: DRUG USE FOR UNKNOWN INDICATION
     Route: 065
  13. TACROLIMUS [Suspect]
     Indication: IMMUNOSUPPRESSION
     Dosage: 4-5 UG/L
     Route: 065
  14. CYCLOPHOSPHAMIDE [Suspect]
     Indication: BURKITT'S LYMPHOMA
     Route: 065
  15. MERCAPTOPURINE [Suspect]
     Indication: BURKITT'S LYMPHOMA
     Route: 065
  16. ONCOVIN [Concomitant]
  17. PREDNISONE [Concomitant]

REACTIONS (2)
  - NEUTROPENIA [None]
  - RENAL IMPAIRMENT [None]
